FAERS Safety Report 10555013 (Version 1)
Quarter: 2014Q4

REPORT INFORMATION
  Report Type: Spontaneous
  Country: US (occurrence: US)
  Receive Date: 20141030
  Receipt Date: 20141030
  Transmission Date: 20150529
  Serious: Yes (Other)
  Sender: FDA-Public Use
  Company Number: US-PFIZER INC-2014296334

PATIENT
  Age: 28 Year
  Sex: Male
  Weight: 264 kg

DRUGS (2)
  1. VIAGRA [Suspect]
     Active Substance: SILDENAFIL CITRATE
     Dosage: UNK
     Dates: start: 20141026
  2. XANAX [Concomitant]
     Active Substance: ALPRAZOLAM
     Dosage: UNK

REACTIONS (4)
  - Erection increased [Unknown]
  - Musculoskeletal stiffness [Unknown]
  - Intentional overdose [Unknown]
  - Penile size reduced [Unknown]

NARRATIVE: CASE EVENT DATE: 20141026
